FAERS Safety Report 5216153-1 (Version None)
Quarter: 2007Q1

REPORT INFORMATION
  Report Type: 
  Country: None (occurrence: None)
  Receive Date: 20070123
  Receipt Date: 20070111
  Transmission Date: 20070707
  Serious: Yes (Hospitalization, Disabling, Other)
  Sender: FDA-Public Use
  Company Number: CH-PFIZER INC-2006135850

PATIENT
  Sex: Female
  Weight: 47 kg

DRUGS (6)
  1. VFEND [Suspect]
     Route: 042
  2. CANCIDAS [Suspect]
     Route: 042
  3. ANALGESICS [Concomitant]
  4. DIURETICS [Concomitant]
  5. MERONEM [Concomitant]
     Route: 042
  6. TARGOCID [Concomitant]

REACTIONS (1)
  - MYOSITIS OSSIFICANS [None]
